FAERS Safety Report 5425665-7 (Version None)
Quarter: 2007Q3

REPORT INFORMATION
  Report Type: 
  Country: None (occurrence: None)
  Receive Date: 20070824
  Receipt Date: 20070814
  Transmission Date: 20080115
  Serious: Yes (Hospitalization, Other)
  Sender: FDA-Public Use
  Company Number: US-PFIZER INC-2007068584

PATIENT
  Sex: Female
  Weight: 61.4 kg

DRUGS (7)
  1. CHANTIX [Suspect]
     Indication: SMOKING CESSATION THERAPY
     Dosage: TEXT:EVERY DAY
  2. ACTONEL [Concomitant]
  3. METOPROLOL SUCCINATE [Concomitant]
  4. DIOVAN HCT [Concomitant]
  5. FISH OIL [Concomitant]
  6. ASPIRIN [Concomitant]
  7. FIBRE, DIETARY [Concomitant]

REACTIONS (2)
  - BRONCHITIS [None]
  - MULTIPLE ALLERGIES [None]
